FAERS Safety Report 24296992 (Version 1)
Quarter: 2024Q3

REPORT INFORMATION
  Report Type: Spontaneous
  Country: US (occurrence: US)
  Receive Date: 20240909
  Receipt Date: 20240909
  Transmission Date: 20241017
  Serious: Yes (Hospitalization)
  Sender: AMGEN
  Company Number: US-AMGEN-USASP2024178120

PATIENT
  Sex: Female

DRUGS (1)
  1. PROCYSBI [Suspect]
     Active Substance: CYSTEAMINE BITARTRATE
     Indication: Cystinosis
     Dosage: 825 MILLIGRAM, BID (GIVE TWO 300MG PACKETS AND THREE 75 MG PACKET (825 MG TOTAL) TWO TIMES PER DAY)

REACTIONS (1)
  - Gastric infection [Unknown]
